FAERS Safety Report 5002706-2 (Version None)
Quarter: 2006Q2

REPORT INFORMATION
  Report Type: 
  Country: None (occurrence: None)
  Receive Date: 20060516
  Receipt Date: 20060502
  Transmission Date: 20061013
  Serious: Yes (Hospitalization)
  Sender: FDA-Public Use
  Company Number: US-JNJFOC-20060500719

PATIENT
  Sex: Male
  Weight: 2.04 kg

DRUGS (2)
  1. REMICADE [Suspect]
  2. IMURAN [Concomitant]

REACTIONS (2)
  - FEEDING DISORDER [None]
  - SMALL FOR DATES BABY [None]
